FAERS Safety Report 17597436 (Version 1)
Quarter: 2020Q1

REPORT INFORMATION
  Report Type: Report from Study
  Country: GB (occurrence: GB)
  Receive Date: 20200330
  Receipt Date: 20200330
  Transmission Date: 20200409
  Serious: Yes (Other)
  Sender: FDA-Public Use
  Company Number: GB-SAMSUNG BIOEPIS-SB-2020-10523

PATIENT
  Sex: Female

DRUGS (1)
  1. IMRALDI [Suspect]
     Active Substance: ADALIMUMAB
     Indication: AXIAL SPONDYLOARTHRITIS
     Route: 058
     Dates: start: 20200124

REACTIONS (6)
  - Oropharyngeal pain [Unknown]
  - Infection [Unknown]
  - Corona virus infection [Unknown]
  - Body temperature abnormal [Unknown]
  - Respiratory disorder [Unknown]
  - Cough [Unknown]
